FAERS Safety Report 13334461 (Version 1)
Quarter: 2017Q1

REPORT INFORMATION
  Report Type: Spontaneous
  Country: US (occurrence: US)
  Receive Date: 20170314
  Receipt Date: 20170314
  Transmission Date: 20170428
  Serious: Yes (Other)
  Sender: FDA-Public Use
  Company Number: US-JNJFOC-20170209423

PATIENT
  Age: 52 Year
  Sex: Male

DRUGS (8)
  1. BREO ELLIPTA [Concomitant]
     Active Substance: FLUTICASONE FUROATE\VILANTEROL TRIFENATATE
     Dosage: 100-25 MCG
  2. SYMBICORT [Concomitant]
     Active Substance: BUDESONIDE\FORMOTEROL FUMARATE DIHYDRATE
     Dosage: 80-4.5 MCG
  3. IMBRUVICA [Suspect]
     Active Substance: IBRUTINIB
     Indication: CHRONIC LYMPHOCYTIC LEUKAEMIA
     Route: 048
     Dates: start: 20141031
  4. CARVEDILOL. [Concomitant]
     Active Substance: CARVEDILOL
     Route: 048
  5. ALBUTEROL SULFATE. [Concomitant]
     Active Substance: ALBUTEROL SULFATE
     Dosage: QID (PRN)
  6. AMLODIPINE BESYLATE AND BENAZEPRIL HYDROCHLORIDE [Concomitant]
     Active Substance: AMLODIPINE BESYLATE\BENAZEPRIL HYDROCHLORIDE
     Dosage: 10-40 MG
     Route: 048
  7. VITAMIN D3 [Concomitant]
     Active Substance: CHOLECALCIFEROL
     Dosage: 2000 UNIT
     Route: 048
  8. EMLA [Concomitant]
     Active Substance: LIDOCAINE\PRILOCAINE
     Dosage: APPLY TO PORT SITE 1 HOUR BEFORE ACCESS
     Route: 061
     Dates: start: 20130717

REACTIONS (21)
  - Pruritus [Unknown]
  - Asthenia [Recovering/Resolving]
  - Sneezing [Unknown]
  - Asthma [Unknown]
  - Fatigue [Recovering/Resolving]
  - Dehydration [Unknown]
  - Chest pain [Unknown]
  - Syncope [Unknown]
  - Head injury [Unknown]
  - Dyspnoea at rest [Recovered/Resolved]
  - Productive cough [Unknown]
  - Drug prescribing error [Not Recovered/Not Resolved]
  - Diarrhoea [Recovered/Resolved]
  - Dyspnoea exertional [Recovered/Resolved]
  - Sinus congestion [Unknown]
  - Headache [Recovered/Resolved]
  - Hypersensitivity [Unknown]
  - Renal failure [Unknown]
  - Drug dose omission [Unknown]
  - Epistaxis [Unknown]
  - Nasopharyngitis [Unknown]

NARRATIVE: CASE EVENT DATE: 20141031
